FAERS Safety Report 11662129 (Version 1)
Quarter: 2015Q4

REPORT INFORMATION
  Report Type: Spontaneous
  Country: JP (occurrence: JP)
  Receive Date: 20151026
  Receipt Date: 20151026
  Transmission Date: 20160304
  Serious: Yes (Other)
  Sender: FDA-Public Use
  Company Number: PHJP1991JP000603

PATIENT
  Age: 67 Year
  Sex: Male

DRUGS (2)
  1. VOLTAREN [Suspect]
     Active Substance: DICLOFENAC SODIUM
     Indication: PNEUMONIA
     Dosage: 50 MG, QD
     Dates: start: 19910922, end: 19910922
  2. FOSMICIN [Concomitant]
     Active Substance: FOSFOMYCIN CALCIUM
     Indication: LUNG INFECTION
     Dosage: 2 G, QD
     Route: 065
     Dates: start: 19910922, end: 19910922

REACTIONS (9)
  - Red blood cell count decreased [Not Recovered/Not Resolved]
  - Blood pressure decreased [Not Recovered/Not Resolved]
  - Pyrexia [Unknown]
  - Haemoglobin decreased [Recovering/Resolving]
  - Blood urea increased [Unknown]
  - Chest discomfort [Recovered/Resolved]
  - Pneumonia [Recovered/Resolved]
  - Haematocrit decreased [Recovered/Resolved]
  - Shock [Recovered/Resolved]

NARRATIVE: CASE EVENT DATE: 19910922
